FAERS Safety Report 6004269-1 (Version None)
Quarter: 2008Q4

REPORT INFORMATION
  Report Type: 
  Country: None (occurrence: None)
  Receive Date: 20081216
  Receipt Date: 20081205
  Transmission Date: 20090506
  Serious: Yes (Hospitalization)
  Sender: FDA-Public Use
  Company Number: US-CELGENEUS-163-CCAZA-08110147

PATIENT
  Sex: Female
  Weight: 58.2 kg

DRUGS (8)
  1. AZACITIDINE [Suspect]
     Indication: MYELODYSPLASTIC SYNDROME
     Route: 051
     Dates: start: 20081006, end: 20081012
  2. AZACITIDINE [Suspect]
     Route: 051
     Dates: start: 20080707, end: 20080713
  3. SIMVASTATIN [Concomitant]
     Route: 048
  4. PROMETHAZINE [Concomitant]
     Indication: NAUSEA
     Route: 048
     Dates: start: 20080707
  5. DARBEPOETIN [Concomitant]
     Route: 058
     Dates: start: 20080715
  6. GRANISETRON [Concomitant]
     Indication: NAUSEA
     Route: 051
     Dates: start: 20080707
  7. PEGFILGRASTIM [Concomitant]
     Indication: NEUTROPENIA
     Route: 058
     Dates: start: 20080712
  8. PLATELETS [Concomitant]
     Indication: THROMBOCYTOPENIA
     Route: 051
     Dates: start: 20081001

REACTIONS (3)
  - CLOSTRIDIUM DIFFICILE COLITIS [None]
  - NEUROGENIC BLADDER [None]
  - SEPSIS [None]
